FAERS Safety Report 7628682-1 (Version None)
Quarter: 2011Q3

REPORT INFORMATION
  Report Type: 
  Country: None (occurrence: None)
  Receive Date: 20110722
  Receipt Date: 20110713
  Transmission Date: 20111222
  Serious: Yes (Hospitalization, Other)
  Sender: FDA-Public Use
  Company Number: US-BAYER-201031717NA

PATIENT
  Age: 24 Year
  Sex: Female
  Weight: 74.83 kg

DRUGS (7)
  1. YAZ [Suspect]
     Indication: ORAL CONTRACEPTION
  2. CYCLOBENZAPRINE [Concomitant]
     Indication: SINUS DISORDER
     Dosage: 5 MG, QD
     Dates: start: 20090401
  3. YAZ [Suspect]
     Indication: PREMENSTRUAL SYNDROME
     Dosage: UNK
     Route: 048
     Dates: start: 20090401, end: 20090501
  4. DROSPIRENONE AND ETHINYL ESTRADIOL [Suspect]
     Indication: ORAL CONTRACEPTION
  5. BP POLY [Concomitant]
     Indication: SINUS DISORDER
     Dosage: UNK UNK, QD
     Dates: start: 20090401
  6. CLARINEX [Concomitant]
     Indication: SINUS DISORDER
     Dosage: UNK UNK, QD
     Dates: start: 20090401
  7. DROSPIRENONE AND ETHINYL ESTRADIOL [Suspect]
     Indication: PREMENSTRUAL SYNDROME
     Dosage: UNK
     Route: 048
     Dates: start: 20090601

REACTIONS (4)
  - CHOLELITHIASIS [None]
  - CHOLECYSTITIS ACUTE [None]
  - MENTAL DISORDER [None]
  - PAIN [None]
